FAERS Safety Report 12878703 (Version 1)
Quarter: 2016Q4

REPORT INFORMATION
  Report Type: Spontaneous
  Country: ES (occurrence: ES)
  Receive Date: 20161024
  Receipt Date: 20161024
  Transmission Date: 20170207
  Serious: Yes (Death)
  Sender: FDA-Public Use
  Company Number: ES-SA-2016SA192287

PATIENT
  Age: 60 Year
  Sex: Male

DRUGS (12)
  1. IRINOTECAN [Suspect]
     Active Substance: IRINOTECAN
     Indication: ADENOCARCINOMA OF COLON
     Route: 065
     Dates: start: 2013, end: 201311
  2. FOLINIC ACID [Suspect]
     Active Substance: LEUCOVORIN
     Indication: ADENOCARCINOMA OF COLON
     Dosage: FOLFOX6M REGIMEN
     Route: 065
     Dates: start: 201212, end: 201306
  3. FOLINIC ACID [Suspect]
     Active Substance: LEUCOVORIN
     Indication: ADENOCARCINOMA OF COLON
     Dosage: FOLFIRI REGIMEN
     Route: 065
     Dates: start: 2013, end: 201311
  4. FLUOROURACIL. [Suspect]
     Active Substance: FLUOROURACIL
     Indication: ADENOCARCINOMA OF COLON
     Dosage: FOLFOX6M REGIMEN
     Route: 065
     Dates: start: 201212, end: 201306
  5. OXALIPLATIN. [Suspect]
     Active Substance: OXALIPLATIN
     Indication: ADENOCARCINOMA OF COLON
     Route: 065
     Dates: start: 201212, end: 201306
  6. FLUOROURACIL. [Suspect]
     Active Substance: FLUOROURACIL
     Indication: ADENOCARCINOMA OF COLON
     Dosage: INFUSION; FOLFIRI REGIMEN
     Route: 065
     Dates: start: 2013, end: 201311
  7. AFLIBERCEPT [Suspect]
     Active Substance: AFLIBERCEPT
     Indication: METASTASES TO ABDOMINAL CAVITY
     Route: 065
     Dates: start: 2013, end: 201311
  8. IRINOTECAN [Suspect]
     Active Substance: IRINOTECAN
     Indication: METASTASES TO LUNG
     Route: 065
     Dates: start: 2013, end: 201311
  9. AFLIBERCEPT [Suspect]
     Active Substance: AFLIBERCEPT
     Indication: ADENOCARCINOMA OF COLON
     Route: 065
     Dates: start: 2013, end: 201311
  10. AFLIBERCEPT [Suspect]
     Active Substance: AFLIBERCEPT
     Indication: METASTASES TO LUNG
     Route: 065
     Dates: start: 2013, end: 201311
  11. IRINOTECAN [Suspect]
     Active Substance: IRINOTECAN
     Indication: METASTASES TO ABDOMINAL CAVITY
     Route: 065
     Dates: start: 2013, end: 201311
  12. BEVACIZUMAB [Suspect]
     Active Substance: BEVACIZUMAB
     Indication: ADENOCARCINOMA OF COLON
     Route: 065
     Dates: start: 201212, end: 201306

REACTIONS (9)
  - Metastases to bone [Fatal]
  - Pulmonary mass [Fatal]
  - Tumour marker increased [Fatal]
  - Metastases to lung [Fatal]
  - Disease progression [Fatal]
  - Metastatic neoplasm [Fatal]
  - Metastases to abdominal cavity [Fatal]
  - Asthenia [Fatal]
  - Abdominal pain [Fatal]

NARRATIVE: CASE EVENT DATE: 201306
